FAERS Safety Report 20983112 (Version 1)
Quarter: 2022Q2

REPORT INFORMATION
  Report Type: Spontaneous
  Country: US (occurrence: US)
  Receive Date: 20220620
  Receipt Date: 20220620
  Transmission Date: 20220720
  Serious: Yes (Hospitalization)
  Sender: FDA-Public Use
  Company Number: US-CIPHER-2022-US-000027

PATIENT
  Age: 29 Year
  Sex: Female

DRUGS (1)
  1. TRAMADOL HYDROCHLORIDE [Suspect]
     Active Substance: TRAMADOL HYDROCHLORIDE
     Indication: Product used for unknown indication
     Dosage: 5000-6000 MG
     Route: 048

REACTIONS (6)
  - Seizure [Unknown]
  - Overdose [Unknown]
  - Memory impairment [Unknown]
  - Sedation [Unknown]
  - Drug withdrawal syndrome [Unknown]
  - Drug abuse [Unknown]
